FAERS Safety Report 6167455-6 (Version None)
Quarter: 2009Q2

REPORT INFORMATION
  Report Type: 
  Country: None (occurrence: None)
  Receive Date: 20090424
  Receipt Date: 20090415
  Transmission Date: 20091009
  Serious: Yes (Death, Other)
  Sender: FDA-Public Use
  Company Number: GB-BRISTOL-MYERS SQUIBB COMPANY-14596480

PATIENT
  Age: 24 Year
  Sex: Female

DRUGS (6)
  1. AMPHOTERICIN B [Suspect]
  2. ITRACONAZOLE [Suspect]
     Route: 048
  3. AZATHIOPRINE [Suspect]
     Indication: IMMUNOSUPPRESSION
     Route: 048
  4. CYCLOSPORINE [Suspect]
     Indication: IMMUNOSUPPRESSION
     Route: 048
  5. METHYLPREDNISOLONE 4MG TAB [Suspect]
     Indication: IMMUNOSUPPRESSION
     Route: 042
  6. PREDNISOLONE [Suspect]
     Indication: IMMUNOSUPPRESSION

REACTIONS (8)
  - ASPERGILLOSIS [None]
  - CARDIAC VALVE VEGETATION [None]
  - CIRCULATORY COLLAPSE [None]
  - EYE INFECTION FUNGAL [None]
  - FUNGAL ENDOCARDITIS [None]
  - INTESTINAL INFARCTION [None]
  - MITRAL VALVE INCOMPETENCE [None]
  - SEPSIS [None]
